FAERS Safety Report 8307338-6 (Version None)
Quarter: 2012Q1

REPORT INFORMATION
  Report Type: 
  Country: None (occurrence: None)
  Receive Date: 20120327
  Receipt Date: 20100209
  Transmission Date: 20120608
  Serious: Yes (Other)
  Sender: FDA-Public Use
  Company Number: PHEH2009US03774

PATIENT
  Age: 64 Year
  Sex: Male

DRUGS (4)
  1. GLEEVEC [Suspect]
     Indication: CHRONIC MYELOID LEUKAEMIA
     Dosage: 400 MG, QD, ORAL
     Route: 048
     Dates: start: 20010701
  2. PRILOSEC [Concomitant]
  3. NAPROXEN SODIUM [Concomitant]
  4. ALEVE	/00256202/ [Concomitant]

REACTIONS (8)
  - PHOTOPSIA [None]
  - EYELID OEDEMA [None]
  - EYE SWELLING [None]
  - CONJUNCTIVAL HAEMORRHAGE [None]
  - CATARACT [None]
  - EYE DISCHARGE [None]
  - CONJUNCTIVITIS [None]
  - OCULAR HYPERAEMIA [None]
